FAERS Safety Report 12161970 (Version 2)
Quarter: 2016Q1

REPORT INFORMATION
  Report Type: Spontaneous
  Country: BR (occurrence: BR)
  Receive Date: 20160309
  Receipt Date: 20160331
  Transmission Date: 20160526
  Serious: Yes (Other)
  Sender: FDA-Public Use
  Company Number: BR-SUN PHARMACEUTICAL INDUSTRIES LTD-2016R1-112554

PATIENT

DRUGS (1)
  1. DICLOFENAC [Suspect]
     Active Substance: DICLOFENAC
     Indication: HAEMORRHOIDS
     Dosage: 150 MG, QD
     Route: 064

REACTIONS (4)
  - Ductus arteriosus stenosis foetal [Recovered/Resolved]
  - Dilatation ventricular [Recovered/Resolved]
  - Tricuspid valve incompetence [Recovered/Resolved]
  - Foetal exposure during pregnancy [Recovered/Resolved]
